FAERS Safety Report 20327547 (Version 1)
Quarter: 2022Q1

REPORT INFORMATION
  Report Type: Spontaneous
  Country: FR (occurrence: FR)
  Receive Date: 20220112
  Receipt Date: 20220112
  Transmission Date: 20220423
  Serious: Yes (Other)
  Sender: FDA-Public Use
  Company Number: None

PATIENT
  Age: 73 Year
  Sex: Female

DRUGS (1)
  1. VENLAFAXINE HCL [Suspect]
     Active Substance: VENLAFAXINE HYDROCHLORIDE
     Indication: Mixed anxiety and depressive disorder
     Dosage: 150 MG, 1X/DAY
     Route: 048
     Dates: start: 20210108

REACTIONS (1)
  - Micturition disorder [Not Recovered/Not Resolved]

NARRATIVE: CASE EVENT DATE: 20210115
